FAERS Safety Report 9103928 (Version 1)
Quarter: 2013Q1

REPORT INFORMATION
  Report Type: Spontaneous
  Country: NO (occurrence: NO)
  Receive Date: 20130219
  Receipt Date: 20130219
  Transmission Date: 20140127
  Serious: Yes (Life-Threatening, Hospitalization, Other)
  Sender: FDA-Public Use
  Company Number: NO-ELI_LILLY_AND_COMPANY-NO201302002919

PATIENT
  Age: 27 None
  Sex: Female

DRUGS (3)
  1. ZYPREXA VELOTAB [Suspect]
     Indication: PSYCHOTIC DISORDER
     Dosage: 1 DF, UNKNOWN
     Route: 060
  2. ZYPREXA VELOTAB [Suspect]
     Dosage: 40 MG, QD
     Route: 060
     Dates: start: 20120830, end: 20121228
  3. ZYPREXA VELOTAB [Suspect]
     Dosage: 20 MG, QD
     Route: 060
     Dates: end: 20130115

REACTIONS (4)
  - Pulmonary embolism [Recovered/Resolved]
  - Decreased activity [Unknown]
  - Decreased appetite [Unknown]
  - Overdose [Unknown]
